FAERS Safety Report 5133534-5 (Version None)
Quarter: 2006Q4

REPORT INFORMATION
  Report Type: 
  Country: None (occurrence: None)
  Receive Date: 20061024
  Receipt Date: 20061002
  Transmission Date: 20070319
  Serious: Yes (Death)
  Sender: FDA-Public Use
  Company Number: 2006CG01612

PATIENT
  Age: 26951 Day
  Sex: Male

DRUGS (3)
  1. IRESSA [Suspect]
     Indication: NON-SMALL CELL LUNG CANCER
     Route: 048
     Dates: start: 20060828
  2. AMLOR [Concomitant]
     Indication: HYPERTENSION
  3. APROVEL [Concomitant]
     Indication: HYPERTENSION

REACTIONS (9)
  - ACIDOSIS [None]
  - CONSTIPATION [None]
  - DEPRESSED LEVEL OF CONSCIOUSNESS [None]
  - DIARRHOEA [None]
  - ESCHERICHIA INFECTION [None]
  - PSEUDOMONAS INFECTION [None]
  - RENAL FAILURE [None]
  - SHOCK [None]
  - VOMITING [None]
